FAERS Safety Report 8365229-9 (Version None)
Quarter: 2012Q2

REPORT INFORMATION
  Report Type: 
  Country: None (occurrence: None)
  Receive Date: 20120516
  Receipt Date: 20120507
  Transmission Date: 20120825
  Serious: Yes (Other)
  Sender: FDA-Public Use
  Company Number: NL-BAXTER-2012BAX005659

PATIENT
  Age: 29 Year
  Sex: Female

DRUGS (4)
  1. COTRIM [Concomitant]
     Indication: WEGENER'S GRANULOMATOSIS
  2. PREDNISOLONE [Concomitant]
     Indication: WEGENER'S GRANULOMATOSIS
  3. CYCLOPHOSPHAMIDE [Suspect]
     Indication: WEGENER'S GRANULOMATOSIS
     Route: 042
  4. AZATHIOPRINE [Concomitant]
     Indication: WEGENER'S GRANULOMATOSIS

REACTIONS (1)
  - MATERNAL EXPOSURE BEFORE PREGNANCY [None]
